FAERS Safety Report 8067121-6 (Version None)
Quarter: 2011Q4

REPORT INFORMATION
  Report Type: 
  Country: None (occurrence: None)
  Receive Date: 20111221
  Receipt Date: 20110429
  Transmission Date: 20120403
  Serious: Yes (Other)
  Sender: FDA-Public Use
  Company Number: PHHY2010US78861

PATIENT
  Sex: Male

DRUGS (6)
  1. GEMFIBROZIL [Concomitant]
  2. METOPROLOL SUCCINATE [Concomitant]
  3. MULTI-VITAMINS [Concomitant]
  4. FISH OIL  (FISH OIL ) [Concomitant]
  5. VITAMIN D [Concomitant]
  6. EXJADE [Suspect]
     Indication: SICKLE CELL ANAEMIA
     Dosage: 750 MG, QD, ORAL
     Route: 048
     Dates: start: 20101021

REACTIONS (6)
  - CHILLS [None]
  - DRUG ERUPTION [None]
  - VOMITING [None]
  - RENAL IMPAIRMENT [None]
  - DIARRHOEA [None]
  - DRUG INTOLERANCE [None]
